FAERS Safety Report 9804993 (Version 1)
Quarter: 2014Q1

REPORT INFORMATION
  Report Type: Report from Study
  Country: US (occurrence: US)
  Receive Date: 20140109
  Receipt Date: 20140109
  Transmission Date: 20141002
  Serious: Yes (Other)
  Sender: FDA-Public Use
  Company Number: US-ROCHE-1327799

PATIENT
  Age: 91 Year
  Sex: Female

DRUGS (3)
  1. LUCENTIS [Suspect]
     Indication: PRODUCT USED FOR UNKNOWN INDICATION
     Route: 050
     Dates: start: 2013
  2. CEPHALEXIN [Suspect]
     Indication: URINARY TRACT INFECTION
     Route: 065
     Dates: start: 20131012, end: 2013
  3. PRAVASTATIN [Concomitant]

REACTIONS (13)
  - Transient ischaemic attack [Not Recovered/Not Resolved]
  - Cerebrovascular accident [Unknown]
  - Rash [Recovered/Resolved]
  - Urinary tract infection [Recovered/Resolved]
  - Deafness [Not Recovered/Not Resolved]
  - Cerumen impaction [Unknown]
  - Muscular weakness [Not Recovered/Not Resolved]
  - Muscular weakness [Not Recovered/Not Resolved]
  - Pain in extremity [Not Recovered/Not Resolved]
  - Nerve compression [Not Recovered/Not Resolved]
  - Spinal osteoarthritis [Unknown]
  - Malaise [Not Recovered/Not Resolved]
  - Stress [Not Recovered/Not Resolved]
